FAERS Safety Report 11916754 (Version 2)
Quarter: 2016Q1

REPORT INFORMATION
  Report Type: Report from Study
  Country: US (occurrence: US)
  Receive Date: 20160114
  Receipt Date: 20160216
  Transmission Date: 20160526
  Serious: Yes (Hospitalization, Other)
  Sender: FDA-Public Use
  Company Number: US-JNJFOC-20160107589

PATIENT
  Age: 74 Year
  Sex: Female
  Weight: 51 kg

DRUGS (22)
  1. TYLENOL [Concomitant]
     Active Substance: ACETAMINOPHEN
     Indication: PAIN
     Dosage: PRN (AS NECESSARY)
     Route: 048
  2. LORAZEPAM. [Concomitant]
     Active Substance: LORAZEPAM
     Dosage: 0.5 TO 1.0 MG PRN NIGHTLY
     Route: 048
  3. METOPROLOL. [Concomitant]
     Active Substance: METOPROLOL
     Route: 048
  4. PRILOSEC [Concomitant]
     Active Substance: OMEPRAZOLE MAGNESIUM
     Route: 048
  5. PEPTO-BISMOL [Concomitant]
     Active Substance: BISMUTH SUBSALICYLATE\CALCIUM CARBONATE
     Indication: DYSPEPSIA
     Dosage: PRN/1 TAB QD PRN
     Route: 048
  6. BACITRACIN OPHTHALMIC [Concomitant]
     Route: 047
  7. ZYRTEC [Concomitant]
     Active Substance: CETIRIZINE HYDROCHLORIDE
     Indication: HYPERSENSITIVITY
     Route: 048
  8. ZYLOPRIM [Concomitant]
     Active Substance: ALLOPURINOL
  9. PROMETHAZINE HYDROCHLORIDE WITH CODEINE [Concomitant]
     Indication: COUGH
     Dosage: 6.25-10MG, 5 ML TID PRN
     Route: 048
  10. PEPTO-BISMOL [Concomitant]
     Active Substance: BISMUTH SUBSALICYLATE\CALCIUM CARBONATE
     Indication: DYSPEPSIA
     Route: 048
  11. DELTASON [Concomitant]
     Route: 048
  12. MULTIVITAMIN AND MINERAL SUPPLEMENT [Concomitant]
     Active Substance: MINERALS\VITAMINS
     Dosage: UNK
     Route: 048
  13. FISH OIL W/TOCOPHEROL [Concomitant]
     Dosage: 1 DF, QD
     Route: 048
  14. DELTASON [Concomitant]
     Route: 048
  15. LOPERAMIDE [Concomitant]
     Active Substance: LOPERAMIDE
     Dosage: 1 DF, QD PRN
     Route: 048
  16. PERCOCET [Concomitant]
     Active Substance: ACETAMINOPHEN\OXYCODONE HYDROCHLORIDE
     Indication: PAIN
     Dosage: 5-325 MG Q8H PRN
     Route: 048
  17. DELTASON [Concomitant]
     Route: 048
  18. BIFIDOBACTERIUM LACTIS [Concomitant]
     Dosage: 1 DF QD
     Route: 048
  19. IMBRUVICA [Suspect]
     Active Substance: IBRUTINIB
     Indication: CHRONIC LYMPHOCYTIC LEUKAEMIA
     Route: 048
     Dates: start: 20150606, end: 20151216
  20. CALTRATE PLUS-D [Concomitant]
     Dosage: 1 DF, QD
     Route: 048
  21. GAMMAGARD S/D [Concomitant]
     Active Substance: HUMAN IMMUNOGLOBULIN G
     Dosage: EVERY TWO MONTHS
     Route: 042
  22. DELTASON [Concomitant]
     Route: 048

REACTIONS (7)
  - Acute coronary syndrome [Unknown]
  - Respiratory failure [Unknown]
  - Pulmonary oedema [Unknown]
  - Hypertensive emergency [Recovering/Resolving]
  - Myocardial infarction [Recovered/Resolved with Sequelae]
  - Blood urine present [Unknown]
  - White blood cell count increased [Unknown]

NARRATIVE: CASE EVENT DATE: 20151216
